FAERS Safety Report 14014934 (Version 1)
Quarter: 2017Q3

REPORT INFORMATION
  Report Type: Spontaneous
  Country: US (occurrence: US)
  Receive Date: 20170927
  Receipt Date: 20170927
  Transmission Date: 20171128
  Serious: No
  Sender: FDA-Public Use
  Company Number: US-ASTRAZENECA-2017SE65813

PATIENT

DRUGS (1)
  1. SYMBICORT [Suspect]
     Active Substance: BUDESONIDE\FORMOTEROL FUMARATE DIHYDRATE
     Dosage: USING SYMBICORT ONLY ONCE DAILY.
     Route: 055

REACTIONS (4)
  - Drug ineffective [Unknown]
  - Tremor [Unknown]
  - Discomfort [Unknown]
  - Product use issue [Unknown]
